FAERS Safety Report 8569403-8 (Version None)
Quarter: 2012Q3

REPORT INFORMATION
  Report Type: 
  Country: None (occurrence: None)
  Receive Date: 20120803
  Receipt Date: 20120601
  Transmission Date: 20120928
  Serious: No
  Sender: FDA-Public Use
  Company Number: US-ABBOTT-12P-163-0941531-00

PATIENT
  Sex: Female
  Weight: 81.266 kg

DRUGS (5)
  1. NIASPAN [Suspect]
     Indication: BLOOD CHOLESTEROL INCREASED
     Dosage: AT BEDTIME
     Route: 048
     Dates: start: 20101201
  2. NIASPAN [Suspect]
     Indication: DRUG INTOLERANCE
     Dosage: 2-500MG AT BEDTIME
     Route: 048
  3. VOLTAREN [Concomitant]
     Indication: ARTHRALGIA
     Route: 048
  4. NIASPAN [Suspect]
     Dosage: AT BEDTIME
     Route: 048
  5. IBUPROFEN (ADVIL) [Concomitant]
     Indication: PRODUCT USED FOR UNKNOWN INDICATION
     Route: 048

REACTIONS (5)
  - VOMITING [None]
  - SALIVARY HYPERSECRETION [None]
  - BLOOD CHOLESTEROL INCREASED [None]
  - NAUSEA [None]
  - DRUG INTOLERANCE [None]
